FAERS Safety Report 23226793 (Version 1)
Quarter: 2023Q4

REPORT INFORMATION
  Report Type: Spontaneous
  Country: US (occurrence: US)
  Receive Date: 20231124
  Receipt Date: 20231124
  Transmission Date: 20240110
  Serious: Yes (Other)
  Sender: FDA-Public Use
  Company Number: US-JNJFOC-20231143685

PATIENT

DRUGS (1)
  1. AVOBENZONE, OCTINOXATE, AND OCTISALATE [Suspect]
     Active Substance: AVOBENZONE\OCTINOXATE\OCTISALATE
     Indication: Product used for unknown indication
     Route: 061

REACTIONS (1)
  - Skin cancer [Recovering/Resolving]
